FAERS Safety Report 4811411-4 (Version None)
Quarter: 2005Q4

REPORT INFORMATION
  Report Type: 
  Country: None (occurrence: None)
  Receive Date: 20051027
  Receipt Date: 20051026
  Transmission Date: 20060501
  Serious: Yes (Death)
  Sender: FDA-Public Use
  Company Number: PHBS2005JP15737

PATIENT
  Age: 71 Year
  Sex: Male

DRUGS (1)
  1. CYCLOSPORINE [Suspect]
     Indication: ANAEMIA HAEMOLYTIC AUTOIMMUNE
     Dosage: 100 MG/D
     Route: 048

REACTIONS (2)
  - ARTERIOSPASM CORONARY [None]
  - MULTI-ORGAN FAILURE [None]
